FAERS Safety Report 16863745 (Version 2)
Quarter: 2025Q1

REPORT INFORMATION
  Report Type: Spontaneous
  Country: CA (occurrence: CA)
  Receive Date: 20190927
  Receipt Date: 20250102
  Transmission Date: 20250408
  Serious: Yes (Congenital Anomaly, Other)
  Sender: MERCK
  Company Number: CA-009507513-1909CAN008833

PATIENT

DRUGS (1)
  1. ISENTRESS [Suspect]
     Active Substance: RALTEGRAVIR POTASSIUM
     Route: 064

REACTIONS (2)
  - Congenital genitourinary abnormality [Unknown]
  - Foetal exposure during pregnancy [Recovered/Resolved]
